FAERS Safety Report 13522998 (Version 2)
Quarter: 2017Q3

REPORT INFORMATION
  Report Type: Spontaneous
  Country: US (occurrence: US)
  Receive Date: 20170508
  Receipt Date: 20170912
  Transmission Date: 20171127
  Serious: Yes (Hospitalization, Other)
  Sender: FDA-Public Use
  Company Number: US-VIFOR (INTERNATIONAL) INC.-VIT-2017-00703

PATIENT
  Age: 70 Year
  Sex: Female
  Weight: 120.31 kg

DRUGS (22)
  1. VELTASSA [Suspect]
     Active Substance: PATIROMER
     Route: 048
     Dates: start: 20160816
  2. LEVOTHYROXINE. [Concomitant]
     Active Substance: LEVOTHYROXINE
  3. APAP/ CODEINE [Concomitant]
  4. OMEPRAZOLE. [Concomitant]
     Active Substance: OMEPRAZOLE
  5. ALLOPURINOL. [Concomitant]
     Active Substance: ALLOPURINOL
  6. GABAPENTIN. [Concomitant]
     Active Substance: GABAPENTIN
  7. BACTRIM [Concomitant]
  8. PROBIOTIC [Concomitant]
     Active Substance: PROBIOTICS NOS
  9. SIMVASTATIN. [Concomitant]
     Active Substance: SIMVASTATIN
  10. PRIMIDONE. [Concomitant]
     Active Substance: PRIMIDONE
  11. BIOTIN [Concomitant]
     Active Substance: BIOTIN
  12. SMZ-TMP [Concomitant]
     Active Substance: SULFAMETHOXAZOLE\TRIMETHOPRIM
  13. LISINOPRIL. [Concomitant]
     Active Substance: LISINOPRIL
  14. FLONASE [Concomitant]
  15. AMPICILLIN [Concomitant]
     Active Substance: AMPICILLIN
  16. VELTASSA [Suspect]
     Active Substance: PATIROMER
     Indication: HYPERKALAEMIA
     Route: 048
     Dates: start: 20160818
  17. FLUTICASONE. [Concomitant]
     Active Substance: FLUTICASONE
  18. WARFARIN [Concomitant]
     Active Substance: WARFARIN
  19. CIPROFLOXACIN. [Concomitant]
     Active Substance: CIPROFLOXACIN
  20. CALCITRIOL. [Concomitant]
     Active Substance: CALCITRIOL
  21. FUROSEMIDE. [Concomitant]
     Active Substance: FUROSEMIDE
  22. NITROFURANTOIN. [Concomitant]
     Active Substance: NITROFURANTOIN

REACTIONS (11)
  - Thrombosis [Not Recovered/Not Resolved]
  - Vomiting [Recovered/Resolved]
  - Diarrhoea [Recovered/Resolved]
  - Blood potassium increased [Recovering/Resolving]
  - Nausea [Recovered/Resolved]
  - Urinary tract infection [Not Recovered/Not Resolved]
  - Abdominal distension [Recovered/Resolved]
  - Inappropriate schedule of drug administration [Unknown]
  - Drug dose omission [Unknown]
  - Flatulence [Recovered/Resolved]
  - Renal disorder [Recovering/Resolving]

NARRATIVE: CASE EVENT DATE: 20160816
